FAERS Safety Report 16771143 (Version 1)
Quarter: 2019Q3

REPORT INFORMATION
  Report Type: Spontaneous
  Country: US (occurrence: US)
  Receive Date: 20190904
  Receipt Date: 20190904
  Transmission Date: 20191005
  Serious: No
  Sender: FDA-Public Use
  Company Number: US-GLAXOSMITHKLINE-US2019156442

PATIENT
  Age: 66 Year
  Sex: Female

DRUGS (1)
  1. NICORETTE [Suspect]
     Active Substance: NICOTINE
     Indication: SMOKING CESSATION THERAPY
     Dosage: 2 MG, QD (USED IT 1 OR 2 DAYS)
     Dates: end: 20190824

REACTIONS (6)
  - Hypertension [Recovering/Resolving]
  - Nausea [Recovering/Resolving]
  - Inappropriate schedule of product administration [Unknown]
  - Headache [Recovering/Resolving]
  - Malaise [Unknown]
  - Incorrect dose administered [Unknown]
